FAERS Safety Report 6965970-6 (Version None)
Quarter: 2010Q3

REPORT INFORMATION
  Report Type: 
  Country: None (occurrence: None)
  Receive Date: 20100903
  Receipt Date: 20100825
  Transmission Date: 20110219
  Serious: No
  Sender: FDA-Public Use
  Company Number: US-PFIZER INC-9508974

PATIENT
  Sex: Male

DRUGS (3)
  1. ZOLOFT [Suspect]
     Indication: DEPRESSION
     Dosage: DAILY
     Route: 048
     Dates: start: 19950307, end: 19950824
  2. ZOLOFT [Suspect]
     Dosage: DAILY
     Route: 048
     Dates: start: 19950829
  3. ZOLOFT [Suspect]
     Dosage: 100 MG, UNK
     Dates: start: 19950201

REACTIONS (7)
  - COLD SWEAT [None]
  - DEPRESSION [None]
  - INFERTILITY MALE [None]
  - MALAISE [None]
  - NAUSEA [None]
  - SEXUAL DYSFUNCTION [None]
  - TREMOR [None]
